FAERS Safety Report 6468510-3 (Version None)
Quarter: 2009Q4

REPORT INFORMATION
  Report Type: 
  Country: None (occurrence: None)
  Receive Date: 20091130
  Receipt Date: 20091116
  Transmission Date: 20100525
  Serious: No
  Sender: FDA-Public Use
  Company Number: 1710034-2009-00206

PATIENT

DRUGS (1)
  1. CHLORHEXIDINE GLUCONATE + ISOPROPYL ALCOHOL [Suspect]

REACTIONS (2)
  - BLOOD DISORDER [None]
  - INFECTION [None]
